FAERS Safety Report 7918461-X (Version None)
Quarter: 2011Q4

REPORT INFORMATION
  Report Type: 
  Country: None (occurrence: None)
  Receive Date: 20111116
  Receipt Date: 20111114
  Transmission Date: 20120403
  Serious: Yes (Hospitalization, Other)
  Sender: FDA-Public Use
  Company Number: US-ELI_LILLY_AND_COMPANY-US201108001106

PATIENT
  Sex: Male
  Weight: 155 kg

DRUGS (9)
  1. AVANDIA [Concomitant]
     Indication: DIABETES MELLITUS
     Dosage: 8 MG, UNK
     Route: 048
     Dates: start: 20050101, end: 20070101
  2. CHANTIX [Concomitant]
     Indication: SMOKING CESSATION THERAPY
  3. BYETTA [Suspect]
     Indication: PRODUCT USED FOR UNKNOWN INDICATION
     Dosage: 10 MG, BID
     Dates: start: 20060501, end: 20090901
  4. METFORMIN HCL [Concomitant]
     Indication: DIABETES MELLITUS
     Dosage: 1000 MG, UNK
     Route: 048
     Dates: start: 20030101
  5. VICODIN [Concomitant]
     Indication: PAIN
  6. LISINOPRIL [Concomitant]
     Dosage: 20 MG, QD
     Route: 048
  7. HYDROCHLOROTHIAZIDE [Concomitant]
     Indication: HYPERTENSION
     Dosage: 25 MG, UNK
     Route: 048
     Dates: start: 20060101
  8. IBUPROFEN [Concomitant]
     Indication: ARTHRITIS
     Dosage: 800 MG, BID
     Dates: start: 20020101
  9. WELLBUTRIN [Concomitant]
     Indication: DEPRESSION
     Dosage: 300 MG/KG, QD
     Route: 048
     Dates: start: 20060101

REACTIONS (4)
  - CHOLELITHIASIS [None]
  - PANCREATITIS ACUTE [None]
  - RENAL FAILURE [None]
  - PANCREATIC PSEUDOCYST [None]
